FAERS Safety Report 5420897-6 (Version None)
Quarter: 2007Q3

REPORT INFORMATION
  Report Type: 
  Country: None (occurrence: None)
  Receive Date: 20070821
  Receipt Date: 20070815
  Transmission Date: 20080115
  Serious: Yes (Other)
  Sender: FDA-Public Use
  Company Number: US-JNJFOC-20070803319

PATIENT
  Age: 79 Year
  Sex: Female
  Weight: 74.84 kg

DRUGS (7)
  1. TYLENOL (CAPLET) [Suspect]
     Route: 048
  2. TYLENOL (CAPLET) [Suspect]
     Indication: PAIN
     Route: 048
  3. ASPIRIN [Concomitant]
  4. OVASAC [Concomitant]
     Indication: SALIVARY HYPERSECRETION
  5. VASOTEC [Concomitant]
     Indication: HYPERTENSION
  6. VITAMIN B-12 [Concomitant]
  7. VITAMIN B6 [Concomitant]

REACTIONS (2)
  - CHOKING [None]
  - WHEEZING [None]
